FAERS Safety Report 5635627-2 (Version None)
Quarter: 2008Q1

REPORT INFORMATION
  Report Type: 
  Country: None (occurrence: None)
  Receive Date: 20080219
  Receipt Date: 20080207
  Transmission Date: 20080703
  Serious: Yes (Hospitalization, Other)
  Sender: FDA-Public Use
  Company Number: MEDI-0006539

PATIENT
  Age: 12 Month
  Sex: Male

DRUGS (1)
  1. SYNAGIS [Suspect]

REACTIONS (2)
  - PNEUMOCOCCAL SEPSIS [None]
  - SEPSIS [None]
